FAERS Safety Report 8208888-3 (Version None)
Quarter: 2012Q1

REPORT INFORMATION
  Report Type: 
  Country: None (occurrence: None)
  Receive Date: 20120227
  Receipt Date: 20111107
  Transmission Date: 20120608
  Serious: No
  Sender: FDA-Public Use
  Company Number: 338970

PATIENT
  Age: 43 Year
  Sex: Male

DRUGS (2)
  1. VICTOZA [Suspect]
     Indication: TYPE 2 DIABETES MELLITUS
     Dosage: 1.2 MG, QD
     Dates: start: 20110701, end: 20111017
  2. ACTOS [Suspect]
     Indication: TYPE 2 DIABETES MELLITUS

REACTIONS (3)
  - WEIGHT DECREASED [None]
  - VOMITING [None]
  - DIARRHOEA [None]
